FAERS Safety Report 8520496-3 (Version None)
Quarter: 2012Q3

REPORT INFORMATION
  Report Type: 
  Country: None (occurrence: None)
  Receive Date: 20120719
  Receipt Date: 20120713
  Transmission Date: 20120928
  Serious: Yes (Hospitalization, Other)
  Sender: FDA-Public Use
  Company Number: US-BAYER-2011-112063

PATIENT
  Age: 31 Year
  Sex: Female
  Weight: 68.027 kg

DRUGS (8)
  1. IMITREX [Concomitant]
     Indication: MIGRAINE
     Dosage: UNK
     Dates: start: 20070101, end: 20110101
  2. ALEVE [Concomitant]
     Dosage: UNK UNK, PRN
  3. EXCEDRIN (MIGRAINE) [Concomitant]
     Dosage: UNK UNK, PRN
     Route: 048
  4. ASCORBIC ACID [Concomitant]
     Dosage: UNK UNK, PRN
  5. FLONASE [Concomitant]
     Route: 045
  6. YASMIN [Suspect]
     Indication: CONTRACEPTION
     Dosage: UNK
     Dates: start: 20070101, end: 20070801
  7. YASMIN [Suspect]
     Indication: PREMENSTRUAL SYNDROME
  8. MIDOL MAXIMUM STRENGTH MULTI-SYMPTOM MENSTRUA [Concomitant]
     Dosage: UNK UNK, PRN
     Route: 048

REACTIONS (8)
  - ANXIETY [None]
  - GALLBLADDER INJURY [None]
  - EMOTIONAL DISTRESS [None]
  - PAIN [None]
  - CHOLECYSTITIS CHRONIC [None]
  - GENERAL PHYSICAL HEALTH DETERIORATION [None]
  - INJURY [None]
  - ANHEDONIA [None]
